FAERS Safety Report 9149583 (Version 1)
Quarter: 2013Q1

REPORT INFORMATION
  Report Type: Spontaneous
  Country: CN (occurrence: CN)
  Receive Date: 20130308
  Receipt Date: 20130308
  Transmission Date: 20140127
  Serious: Yes (Death, Other)
  Sender: FDA-Public Use
  Company Number: CN-009507513-1201CHN00075

PATIENT
  Age: 6 Year
  Sex: Male

DRUGS (3)
  1. PRIMAXIN I.V. [Suspect]
     Indication: PNEUMONIA
  2. PIPERACILLIN SODIUM (+) TAZOBACTAM SODIUM [Concomitant]
  3. SULTAMICILLIN [Concomitant]

REACTIONS (3)
  - Drug ineffective [Fatal]
  - Sepsis [Fatal]
  - Multi-organ failure [Fatal]
